FAERS Safety Report 15169171 (Version 1)
Quarter: 2018Q3

REPORT INFORMATION
  Report Type: Spontaneous
  Country: ES (occurrence: ES)
  Receive Date: 20180720
  Receipt Date: 20180720
  Transmission Date: 20181010
  Serious: Yes (Hospitalization, Other)
  Sender: FDA-Public Use
  Company Number: ES-TEVA-2018-ES-929221

PATIENT
  Age: 2 Year
  Sex: Female
  Weight: 11 kg

DRUGS (6)
  1. ASPARAGINA MONOHIDRATO [Interacting]
     Active Substance: ASPARAGINE
     Indication: ACUTE LEUKAEMIA
     Route: 042
     Dates: start: 20170315, end: 20170405
  2. VINCRISTINA SULFATO [Interacting]
     Active Substance: VINCRISTINE SULFATE
     Indication: ACUTE LEUKAEMIA
     Route: 042
     Dates: start: 20170315, end: 20170405
  3. DOXORUBICINA [Interacting]
     Active Substance: DOXORUBICIN HYDROCHLORIDE
     Indication: ACUTE LEUKAEMIA
     Route: 042
     Dates: start: 20170315, end: 20170405
  4. METHOTREXATO [Suspect]
     Active Substance: METHOTREXATE
     Indication: ACUTE LEUKAEMIA
     Dosage: 10 MILLIGRAM DAILY;
     Route: 042
     Dates: start: 20150315, end: 20170403
  5. CITARABINA [Interacting]
     Active Substance: CYTARABINE
     Indication: ACUTE LEUKAEMIA
     Dosage: 20 MILLIGRAM DAILY;
     Route: 042
     Dates: start: 20170315, end: 20170403
  6. DEXAMETASONA [Interacting]
     Active Substance: DEXAMETHASONE
     Indication: ACUTE LEUKAEMIA
     Dosage: 5 MILLIGRAM DAILY;
     Route: 042
     Dates: start: 20170315, end: 20170405

REACTIONS (3)
  - Drug interaction [Unknown]
  - Hyperglycaemia [Recovered/Resolved]
  - Metapneumovirus infection [Recovered/Resolved]

NARRATIVE: CASE EVENT DATE: 20170322
